FAERS Safety Report 19681394 (Version 1)
Quarter: 2021Q3

REPORT INFORMATION
  Report Type: Spontaneous
  Country: US (occurrence: US)
  Receive Date: 20210810
  Receipt Date: 20210810
  Transmission Date: 20211014
  Serious: No
  Sender: FDA-Public Use
  Company Number: US-IGSA-BIG0013948

PATIENT
  Age: 78 Year
  Sex: Female

DRUGS (26)
  1. TRAMADOL HCL [Concomitant]
     Active Substance: TRAMADOL HYDROCHLORIDE
  2. GABAPENTIN. [Concomitant]
     Active Substance: GABAPENTIN
  3. LORATADINE. [Concomitant]
     Active Substance: LORATADINE
  4. ZINC. [Concomitant]
     Active Substance: ZINC
  5. GAMUNEX?C [Suspect]
     Active Substance: HUMAN IMMUNOGLOBULIN G
     Dosage: UNK
  6. ASPIRIN (E.C.) [Concomitant]
     Active Substance: ASPIRIN
  7. ATORVASTATIN [Concomitant]
     Active Substance: ATORVASTATIN
  8. MILK OF MAGNESIA [Concomitant]
     Active Substance: MAGNESIUM HYDROXIDE
  9. CEFUROXIME ATB [Concomitant]
     Dosage: 250 MILLIGRAM
  10. CITRATE OF MAGNESIUM [Concomitant]
     Active Substance: MAGNESIUM CITRATE
  11. ESTRADIOL. [Concomitant]
     Active Substance: ESTRADIOL
  12. VITAMIN C HL [Concomitant]
  13. VITAMIN D3 [Concomitant]
     Active Substance: CHOLECALCIFEROL
  14. ACETAMINOPHEN. [Concomitant]
     Active Substance: ACETAMINOPHEN
  15. AMOXICILLIN. [Concomitant]
     Active Substance: AMOXICILLIN
  16. TRIAMTERENE. [Concomitant]
     Active Substance: TRIAMTERENE
  17. GAMUNEX?C [Suspect]
     Active Substance: HUMAN IMMUNOGLOBULIN G
     Indication: URINARY INCONTINENCE
     Dosage: 10 GRAM, Q.WK.
     Route: 058
     Dates: start: 20201006
  18. GAMUNEX?C [Suspect]
     Active Substance: HUMAN IMMUNOGLOBULIN G
     Dosage: UNK
  19. OXYCODONE HYDROCHLORIDE. [Concomitant]
     Active Substance: OXYCODONE HYDROCHLORIDE
  20. CALCIUM 600 + D [Concomitant]
     Active Substance: CALCIUM\VITAMIN D
  21. HYDROCODONE [Concomitant]
     Active Substance: HYDROCODONE
  22. DOCUSATE SODIUM. [Concomitant]
     Active Substance: DOCUSATE SODIUM
  23. LEVOFLOXACIN. [Concomitant]
     Active Substance: LEVOFLOXACIN
  24. CEFUROXIME AXETIL. [Concomitant]
     Active Substance: CEFUROXIME AXETIL
  25. LEVOTHYROXIN [Concomitant]
     Active Substance: LEVOTHYROXINE
  26. OMEPRAZOLE. [Concomitant]
     Active Substance: OMEPRAZOLE

REACTIONS (2)
  - Sinusitis [Unknown]
  - Infusion site erythema [Not Recovered/Not Resolved]

NARRATIVE: CASE EVENT DATE: 202101
